FAERS Safety Report 5336478-9 (Version None)
Quarter: 2007Q2

REPORT INFORMATION
  Report Type: 
  Country: None (occurrence: None)
  Receive Date: 20070529
  Receipt Date: 20070516
  Transmission Date: 20071010
  Serious: Yes (Hospitalization)
  Sender: FDA-Public Use
  Company Number: TW-SOLVAY-00207032407

PATIENT
  Age: 13116 Day
  Sex: Female

DRUGS (5)
  1. PROGESTAN [Suspect]
     Indication: ILL-DEFINED DISORDER
     Dosage: DAILY DOSE: 600 MILLIGRAM(S)
     Route: 067
     Dates: start: 20070406
  2. ORG 36286 AND PLACEBO OR PUREGON AND PLACEBO [Suspect]
     Indication: OVARIAN HYPERSTIMULATION SYNDROME
     Dosage: DAILY DOSE: 150 INTERNATIONAL UNIT(S)
     Route: 058
     Dates: start: 20070328, end: 20070403
  3. PUREGON [Suspect]
     Indication: OVARIAN HYPERSTIMULATION SYNDROME
     Dosage: DAILY DOSE: 200 INTERNATIONAL UNIT(S)
     Route: 058
     Dates: start: 20070404, end: 20070404
  4. ORGALUTRAN [Suspect]
     Indication: PROPHYLAXIS
     Dosage: DAILY DOSE: .25 MILLIGRAM(S)
     Route: 058
     Dates: start: 20070401, end: 20070404
  5. PREGNYL [Suspect]
     Indication: OVULATION INDUCTION
     Dosage: DAILY DOSE: 10000 INTERNATIONAL UNIT(S)
     Route: 058
     Dates: start: 20070405, end: 20070405

REACTIONS (1)
  - HETEROTOPIC PREGNANCY [None]
